FAERS Safety Report 8285792-6 (Version None)
Quarter: 2012Q2

REPORT INFORMATION
  Report Type: 
  Country: None (occurrence: None)
  Receive Date: 20120413
  Receipt Date: 20120404
  Transmission Date: 20120825
  Serious: Yes (Hospitalization)
  Sender: FDA-Public Use
  Company Number: US-ELI_LILLY_AND_COMPANY-US201204002090

PATIENT
  Age: 88 Year
  Sex: Female

DRUGS (8)
  1. FORTEO [Suspect]
     Indication: OSTEOPOROSIS
     Dosage: 20 UG, QD
     Dates: start: 20111001
  2. PLAQUENIL [Concomitant]
  3. PLAVIX [Concomitant]
  4. LIPITOR [Concomitant]
  5. CALCIUM CARBONATE [Concomitant]
  6. VITAMIN D [Concomitant]
  7. LISINOPRIL [Concomitant]
  8. MOBIC [Concomitant]

REACTIONS (5)
  - ASTHENIA [None]
  - JOINT SWELLING [None]
  - MUSCULAR WEAKNESS [None]
  - DECREASED APPETITE [None]
  - DEHYDRATION [None]
